FAERS Safety Report 8262092-1 (Version None)
Quarter: 2012Q2

REPORT INFORMATION
  Report Type: 
  Country: None (occurrence: None)
  Receive Date: 20120405
  Receipt Date: 20120329
  Transmission Date: 20120825
  Serious: Yes (Other)
  Sender: FDA-Public Use
  Company Number: PHEH2012US006930

PATIENT
  Sex: Male

DRUGS (7)
  1. PLAVIX [Concomitant]
     Dosage: 75 MG, UNK
  2. FISH OIL [Concomitant]
  3. LIPITOR [Concomitant]
     Dosage: 80 MG, UNK
  4. FUROSEMIDE [Concomitant]
     Dosage: 40 MG, UNK
  5. ASPIRIN [Concomitant]
  6. DIOVAN [Suspect]
     Dosage: 320 MG, UNK
  7. ACYCLOVIR [Concomitant]
     Dosage: 200 MG, TID

REACTIONS (4)
  - CHRONIC LYMPHOCYTIC LEUKAEMIA [None]
  - GENERAL PHYSICAL HEALTH DETERIORATION [None]
  - MYOCARDIAL INFARCTION [None]
  - DIABETES MELLITUS [None]
